FAERS Safety Report 7894660 (Version 2)
Quarter: 2013Q2

REPORT INFORMATION
  Report Type: Spontaneous
  Country: US (occurrence: US)
  Receive Date: 20110412
  Receipt Date: 20130425
  Transmission Date: 20140414
  Serious: Yes (Hospitalization, Other)
  Sender: FDA-Public Use
  Company Number: US-PFIZER INC-2011078268

PATIENT
  Age: 49 Year
  Sex: Male

DRUGS (2)
  1. DILANTIN [Suspect]
     Indication: CONVULSION
     Dosage: 100 MG, 2X/DAY
     Route: 048
     Dates: start: 20060502, end: 2006
  2. COUMADIN [Concomitant]
     Indication: CONVULSION
     Dosage: UNK
     Dates: start: 20060502

REACTIONS (1)
  - Stevens-Johnson syndrome [Recovering/Resolving]
